FAERS Safety Report 23736499 (Version 1)
Quarter: 2024Q2

REPORT INFORMATION
  Report Type: Spontaneous
  Country: US (occurrence: None)
  Receive Date: 20240411
  Receipt Date: 20240411
  Transmission Date: 20240716
  Serious: Yes (Death)
  Sender: FDA-Public Use
  Company Number: None

PATIENT
  Age: 18 Month
  Sex: Male

DRUGS (5)
  1. PERTZYE [Suspect]
     Active Substance: PANCRELIPASE AMYLASE\PANCRELIPASE LIPASE\PANCRELIPASE PROTEASE
     Indication: Gastrointestinal disorder
     Dosage: OTHER FREQUENCY : SIX TIMES DAILY;?
     Route: 045
     Dates: start: 20230127, end: 20231217
  2. FAMOTIDINE [Suspect]
     Active Substance: FAMOTIDINE
     Dates: start: 20221102, end: 20231217
  3. FLUDROCORTISONE [Suspect]
     Active Substance: FLUDROCORTISONE
  4. HYDROCORTISONE [Suspect]
     Active Substance: HYDROCORTISONE
     Dates: start: 20220906, end: 20231217
  5. OMEPRAZOLE [Suspect]
     Active Substance: OMEPRAZOLE
     Dates: start: 20221025, end: 20231217

REACTIONS (4)
  - Adrenal insufficiency [None]
  - Diarrhoea [None]
  - Bradycardia [None]
  - Cardio-respiratory arrest [None]

NARRATIVE: CASE EVENT DATE: 20231217
